FAERS Safety Report 6938416-1 (Version None)
Quarter: 2010Q3

REPORT INFORMATION
  Report Type: 
  Country: None (occurrence: None)
  Receive Date: 20100824
  Receipt Date: 20100811
  Transmission Date: 20110219
  Serious: Yes (Other)
  Sender: FDA-Public Use
  Company Number: ES-ELI_LILLY_AND_COMPANY-ES201008003602

PATIENT
  Sex: Female
  Weight: 68 kg

DRUGS (6)
  1. FORTEO [Suspect]
     Indication: OSTEOPOROSIS
     Dosage: 20 UG, DAILY (1/D)
     Route: 058
     Dates: start: 20100619, end: 20100703
  2. RABEPRAZOLE SODIUM [Concomitant]
     Indication: PROPHYLAXIS
     Dosage: 20 MG, DAILY (1/D)
  3. COZAAR [Concomitant]
     Indication: BLOOD PRESSURE INCREASED
     Dosage: 25 MG, DAILY (1/D)
  4. AMILORIDE HCL AND HYDROCHLOROTHIAZIDE [Concomitant]
     Dosage: UNK,HALF TABLET DAILY (1/D)
  5. IDAPTAN [Concomitant]
     Dosage: UNK, EVERY 12 HOURS
  6. ASPIRIN [Concomitant]
     Dosage: 100 MG, DAILY (1/D)

REACTIONS (3)
  - DEPRESSION [None]
  - GASTRITIS [None]
  - HYPERTENSIVE CRISIS [None]
